FAERS Safety Report 9687016 (Version 3)
Quarter: 2013Q4

REPORT INFORMATION
  Report Type: Spontaneous
  Country: JP (occurrence: JP)
  Receive Date: 20131113
  Receipt Date: 20131121
  Transmission Date: 20140711
  Serious: No
  Sender: FDA-Public Use
  Company Number: JP-PFIZER INC-2013315366

PATIENT
  Age: 42 Year
  Sex: Female

DRUGS (6)
  1. ZITHROMAC [Suspect]
     Indication: NASOPHARYNGITIS
     Dosage: UNK
     Route: 048
     Dates: start: 20131025, end: 20131027
  2. ROHYPNOL [Suspect]
  3. CELESTAMINE [Suspect]
  4. PAXIL [Concomitant]
  5. DEPAS [Concomitant]
  6. LEXOTAN [Concomitant]

REACTIONS (3)
  - Limb discomfort [Unknown]
  - Muscular weakness [Unknown]
  - Diarrhoea [Not Recovered/Not Resolved]
